FAERS Safety Report 12309269 (Version 1)
Quarter: 2016Q2

REPORT INFORMATION
  Report Type: Spontaneous
  Country: PA (occurrence: PA)
  Receive Date: 20160427
  Receipt Date: 20160427
  Transmission Date: 20160815
  Serious: Yes (Death)
  Sender: FDA-Public Use
  Company Number: PA-ROCHE-1748235

PATIENT
  Age: 44 Year
  Sex: Female

DRUGS (4)
  1. 5-FLUOROURACIL [Suspect]
     Active Substance: FLUOROURACIL
     Indication: COLON CANCER METASTATIC
     Route: 042
     Dates: start: 20160419, end: 20160420
  2. LEUCOVORIN. [Concomitant]
     Active Substance: LEUCOVORIN
  3. IRINOTECAN [Concomitant]
     Active Substance: IRINOTECAN
     Indication: COLON CANCER METASTATIC
     Route: 042
     Dates: start: 20160419, end: 20160420
  4. AVASTIN [Suspect]
     Active Substance: BEVACIZUMAB
     Indication: COLON CANCER METASTATIC
     Route: 042
     Dates: start: 20160419, end: 20160420

REACTIONS (6)
  - Pain [Fatal]
  - Nervous system disorder [Fatal]
  - Pain in extremity [Fatal]
  - Hypotension [Fatal]
  - Stupor [Fatal]
  - Encephalopathy [Fatal]

NARRATIVE: CASE EVENT DATE: 20160421
